FAERS Safety Report 17469513 (Version 2)
Quarter: 2020Q1

REPORT INFORMATION
  Report Type: Report from Study
  Country: US (occurrence: US)
  Receive Date: 20200227
  Receipt Date: 20200331
  Transmission Date: 20200409
  Serious: Yes (Other)
  Sender: FDA-Public Use
  Company Number: US-ASTRAZENECA-2020SE26214

PATIENT
  Sex: Male

DRUGS (3)
  1. LYNPARZA [Suspect]
     Active Substance: OLAPARIB
     Indication: PANCREATIC CARCINOMA
     Route: 048
     Dates: start: 20200109
  2. LYNPARZA [Suspect]
     Active Substance: OLAPARIB
     Indication: PANCREATIC CARCINOMA
     Route: 048
  3. LYNPARZA [Suspect]
     Active Substance: OLAPARIB
     Indication: PANCREATIC CARCINOMA
     Route: 048

REACTIONS (1)
  - Pancreatitis [Not Recovered/Not Resolved]
